FAERS Safety Report 11639980 (Version 1)
Quarter: 2015Q4

REPORT INFORMATION
  Report Type: Spontaneous
  Country: US (occurrence: None)
  Receive Date: 20151016
  Receipt Date: 20151016
  Transmission Date: 20160304
  Serious: Yes (Disabling)
  Sender: FDA-Public Use
  Company Number: None

PATIENT
  Age: 57 Year
  Sex: Female
  Weight: 60.33 kg

DRUGS (6)
  1. PROGETIA [Concomitant]
  2. BLOOD PRESSURE MED [Concomitant]
  3. LETROZOLE 2.5 MG BRECKENRIDGE [Suspect]
     Active Substance: LETROZOLE
     Indication: HORMONE REPLACEMENT THERAPY
     Route: 048
     Dates: start: 20151007, end: 20151015
  4. CALCIUM W/D [Concomitant]
  5. HERNIA MED [Concomitant]
  6. HERCEPTIN [Concomitant]
     Active Substance: TRASTUZUMAB

REACTIONS (13)
  - Hunger [None]
  - Headache [None]
  - Vulvovaginal dryness [None]
  - Depressed mood [None]
  - Nervousness [None]
  - Palpitations [None]
  - Thyroid disorder [None]
  - Diarrhoea [None]
  - Arthralgia [None]
  - Constipation [None]
  - Disturbance in attention [None]
  - Musculoskeletal stiffness [None]
  - Bone pain [None]

NARRATIVE: CASE EVENT DATE: 20150921
